FAERS Safety Report 6103005-8 (Version None)
Quarter: 2009Q1

REPORT INFORMATION
  Report Type: 
  Country: None (occurrence: None)
  Receive Date: 20090305
  Receipt Date: 20090225
  Transmission Date: 20090719
  Serious: Yes (Hospitalization, Other)
  Sender: FDA-Public Use
  Company Number: PHHO2009DE02047

PATIENT
  Sex: Male
  Weight: 87 kg

DRUGS (8)
  1. SANDIMMUNE [Suspect]
     Indication: RENAL TRANSPLANT
     Dosage: 150 MG, BID
     Route: 048
     Dates: start: 20051017
  2. SANDIMMUNE [Suspect]
     Dosage: 250 MG, QD
     Route: 048
     Dates: start: 20051104, end: 20051104
  3. SANDIMMUNE [Suspect]
     Dosage: 400 MG, QD
     Route: 048
     Dates: start: 20051105, end: 20051105
  4. SANDIMMUNE [Suspect]
     Dosage: 300 MG, QD
     Route: 048
     Dates: start: 20051118, end: 20060101
  5. SANDIMMUNE [Suspect]
     Dosage: 250 MG, QD
     Route: 048
     Dates: start: 20060102, end: 20060213
  6. NO TREATMENT RECEIVED NOMED [Suspect]
     Indication: RENAL TRANSPLANT
     Dosage: UNK
  7. MYFORTIC [Concomitant]
     Indication: RENAL TRANSPLANT
     Dosage: 540 MG, BID
     Route: 048
  8. DECORTIN-H [Concomitant]
     Indication: RENAL TRANSPLANT
     Dosage: 12.5 MG, QD

REACTIONS (4)
  - GINGIVAL HYPERPLASIA [None]
  - URETERIC STENOSIS [None]
  - URETEROLYSIS PROCEDURE [None]
  - VESICOURETERAL REFLUX SURGERY [None]
